FAERS Safety Report 7878388-9 (Version None)
Quarter: 2011Q4

REPORT INFORMATION
  Report Type: 
  Country: None (occurrence: None)
  Receive Date: 20111003
  Receipt Date: 20110211
  Transmission Date: 20120403
  Serious: Yes (Death, Other)
  Sender: FDA-Public Use
  Company Number: 263669USA

PATIENT
  Age: 16 Year
  Sex: Female

DRUGS (1)
  1. APRI TABLET 0.15/0.03MG (DESOGESTREL W/ETHINYLESTRADIOL) [Suspect]
     Indication: CONTRACEPTION
     Dosage: DAILY (1 IN 24 HR),ORAL
     Route: 048
     Dates: start: 20100723

REACTIONS (1)
  - PULMONARY EMBOLISM [None]
